FAERS Safety Report 8134300-9 (Version None)
Quarter: 2012Q1

REPORT INFORMATION
  Report Type: 
  Country: None (occurrence: None)
  Receive Date: 20120209
  Receipt Date: 20120203
  Transmission Date: 20120608
  Serious: Yes (Other)
  Sender: FDA-Public Use
  Company Number: AUR-APL-2012-00772

PATIENT
  Age: 14 Year
  Sex: Female
  Weight: 55.2 kg

DRUGS (2)
  1. PROMETHAZINE [Concomitant]
  2. FLUOXETINE [Suspect]
     Indication: DEPRESSION
     Dosage: (40 MG), ORAL
     Route: 048
     Dates: start: 20100806, end: 20111108

REACTIONS (2)
  - GAIT DISTURBANCE [None]
  - TREMOR [None]
